FAERS Safety Report 10044923 (Version 1)
Quarter: 2014Q1

REPORT INFORMATION
  Report Type: Spontaneous
  Country: JP (occurrence: JP)
  Receive Date: 20140328
  Receipt Date: 20140328
  Transmission Date: 20141002
  Serious: Yes (Other)
  Sender: FDA-Public Use
  Company Number: JP-GLAXOSMITHKLINE-B0974619A

PATIENT
  Age: 55 Year
  Sex: Female

DRUGS (4)
  1. VALTREX [Suspect]
     Indication: ORAL HERPES
     Dosage: 1000MG TWICE PER DAY
     Route: 048
     Dates: start: 20140220, end: 20140223
  2. CHINESE MEDICINE [Concomitant]
     Indication: SKIN PAPILLOMA
     Route: 048
     Dates: start: 201205
  3. CHINESE MEDICINE [Concomitant]
     Route: 048
     Dates: start: 201202
  4. CHINESE MEDICINE [Concomitant]
     Indication: MENOPAUSAL SYMPTOMS
     Route: 048
     Dates: start: 201202

REACTIONS (4)
  - Myalgia [Recovering/Resolving]
  - Arthralgia [Recovering/Resolving]
  - Musculoskeletal stiffness [Recovering/Resolving]
  - Blister [Recovering/Resolving]
